FAERS Safety Report 8882604 (Version 2)
Quarter: 2013Q2

REPORT INFORMATION
  Report Type: Spontaneous
  Country: US (occurrence: US)
  Receive Date: 20121102
  Receipt Date: 20130510
  Transmission Date: 20140414
  Serious: Yes (Hospitalization, Other)
  Sender: FDA-Public Use
  Company Number: PHHY2012US098432

PATIENT
  Age: 81 Year
  Sex: Female
  Weight: 87.53 kg

DRUGS (9)
  1. GLIBENCLAMIDE [Suspect]
     Indication: TYPE 2 DIABETES MELLITUS
     Dosage: 5 MG, BID
     Route: 048
  2. METFORMIN [Concomitant]
     Indication: TYPE 2 DIABETES MELLITUS
     Dosage: 500 MG, UNK
  3. PIOGLITAZONE [Concomitant]
     Indication: TYPE 2 DIABETES MELLITUS
     Dosage: 30 MG, UNK
  4. HYDROCHLOROTHIAZIDE [Concomitant]
     Dosage: 25 MG, UNK
  5. LISINOPRIL [Concomitant]
     Dosage: 5 MG, UNK
  6. ATORVASTATIN [Concomitant]
     Dosage: 10 MG, UNK
  7. CARVEDILOL [Concomitant]
     Dosage: 25 MG, BID
  8. FUROSEMIDE [Concomitant]
     Dosage: 20 MG, PRN
  9. FLUOXETINE [Concomitant]
     Dosage: 20 MG, UNK

REACTIONS (7)
  - Hip fracture [Unknown]
  - Mobility decreased [Unknown]
  - Fall [Unknown]
  - Oedema peripheral [Unknown]
  - Hypoglycaemia [Recovered/Resolved]
  - Renal impairment [Unknown]
  - Weight increased [Unknown]
